FAERS Safety Report 5951643-5 (Version None)
Quarter: 2008Q4

REPORT INFORMATION
  Report Type: 
  Country: None (occurrence: None)
  Receive Date: 20081113
  Receipt Date: 20081029
  Transmission Date: 20090506
  Serious: Yes (Hospitalization)
  Sender: FDA-Public Use
  Company Number: FR-GENENTECH-270999

PATIENT
  Sex: Male

DRUGS (7)
  1. BEVACIZUMAB [Suspect]
     Indication: SMALL CELL LUNG CANCER STAGE UNSPECIFIED
     Dosage: 1925 MG, Q3W
     Route: 042
     Dates: start: 20080623
  2. BEVACIZUMAB [Suspect]
     Dosage: 1800 MG, UNK
     Dates: start: 20081015
  3. ERLOTINIB [Suspect]
     Indication: SMALL CELL LUNG CANCER STAGE UNSPECIFIED
     Dosage: 150 MG, QD
     Route: 048
     Dates: start: 20080623, end: 20081009
  4. ERLOTINIB [Suspect]
     Dosage: 100 MG, UNK
  5. HYTACAND [Concomitant]
     Indication: DRUG USE FOR UNKNOWN INDICATION
     Dosage: UNK
     Dates: end: 20081009
  6. OXYNORM [Concomitant]
     Indication: DRUG USE FOR UNKNOWN INDICATION
     Dosage: UNK
     Dates: start: 20080505, end: 20081009
  7. DOLIPRANE [Concomitant]
     Indication: DRUG USE FOR UNKNOWN INDICATION

REACTIONS (2)
  - GOUT [None]
  - RASH [None]
